FAERS Safety Report 14911991 (Version 1)
Quarter: 2018Q2

REPORT INFORMATION
  Report Type: Spontaneous
  Country: US (occurrence: US)
  Receive Date: 20180430
  Receipt Date: 20180430
  Transmission Date: 20180711
  Serious: Yes (Other)
  Sender: FDA-Public Use
  Company Number: None

PATIENT
  Age: 43 Year
  Sex: Female
  Weight: 76.5 kg

DRUGS (8)
  1. METOPROLOL SUCC ER [Concomitant]
     Active Substance: METOPROLOL SUCCINATE
  2. EPINASTINE HCL [Concomitant]
     Active Substance: EPINASTINE HYDROCHLORIDE
  3. HAIR VITAMINS [Concomitant]
  4. TUMS [Concomitant]
     Active Substance: CALCIUM CARBONATE
  5. PEPCID AC COMPLETE [Concomitant]
  6. PHAZYME [Concomitant]
     Active Substance: DIMETHICONE 410
  7. LIDOCAINE 3%, NIFEDIPINE 0.5%, KETAMINE 5% [Suspect]
     Active Substance: KETAMINE\LIDOCAINE\NIFEDIPINE
     Indication: HAEMORRHOIDS
     Route: 054
     Dates: start: 20180429, end: 20180429
  8. LIDOCAINE 3%, NIFEDIPINE 0.5%, KETAMINE 5% [Suspect]
     Active Substance: KETAMINE\LIDOCAINE\NIFEDIPINE
     Indication: ANAL FISSURE
     Route: 054
     Dates: start: 20180429, end: 20180429

REACTIONS (4)
  - Hallucination [None]
  - Product formulation issue [None]
  - Delusion [None]
  - Vomiting [None]

NARRATIVE: CASE EVENT DATE: 20180429
